FAERS Safety Report 15749771 (Version 1)
Quarter: 2018Q4

REPORT INFORMATION
  Report Type: Spontaneous
  Country: US (occurrence: US)
  Receive Date: 20181220
  Receipt Date: 20181220
  Transmission Date: 20190205
  Serious: Yes (Other)
  Sender: FDA-Public Use
  Company Number: None

PATIENT
  Age: 18 Year
  Sex: Female
  Weight: 116.9 kg

DRUGS (1)
  1. YAZ [Suspect]
     Active Substance: DROSPIRENONE\ETHINYL ESTRADIOL
     Indication: PULMONARY EMBOLISM
     Dates: start: 20180501, end: 20180929

REACTIONS (8)
  - Brain natriuretic peptide increased [None]
  - Factor V Leiden mutation [None]
  - Syncope [None]
  - Myocardial strain [None]
  - Contraindicated product administered [None]
  - Chest pain [None]
  - Electrocardiogram abnormal [None]
  - Right ventricular dilatation [None]

NARRATIVE: CASE EVENT DATE: 20181003
